FAERS Safety Report 8533885 (Version 2)
Quarter: 2015Q1

REPORT INFORMATION
  Report Type: Spontaneous
  Country: FR (occurrence: FR)
  Receive Date: 20120427
  Receipt Date: 20150102
  Transmission Date: 20150721
  Serious: Yes (Hospitalization)
  Sender: FDA-Public Use
  Company Number: FR-RANBAXY-2012R1-55815

PATIENT
  Age: 58 Year
  Sex: Female

DRUGS (1)
  1. DOXYCYCLINE. [Suspect]
     Active Substance: DOXYCYCLINE
     Indication: ROSACEA
     Dosage: 100 MG, DAILY
     Route: 065

REACTIONS (1)
  - Interstitial lung disease [Recovered/Resolved]
